FAERS Safety Report 22250188 (Version 1)
Quarter: 2023Q2

REPORT INFORMATION
  Report Type: Report from Study
  Country: IN (occurrence: IN)
  Receive Date: 20230425
  Receipt Date: 20230425
  Transmission Date: 20230721
  Serious: Yes (Other)
  Sender: FDA-Public Use
  Company Number: IN-MYLANLABS-2023M1042948

PATIENT
  Age: 10 Year
  Sex: Female

DRUGS (3)
  1. CISPLATIN [Suspect]
     Active Substance: CISPLATIN
     Indication: Medulloblastoma
     Dosage: 75 MILLIGRAM/SQ. METER (EVERY 4 WEEKS) ~SCHEDULED TO RECEIVE CYCLICAL TREATMENT ON.....
     Route: 042
  2. CYCLOPHOSPHAMIDE [Suspect]
     Active Substance: CYCLOPHOSPHAMIDE
     Indication: Medulloblastoma
     Dosage: 1000 MILLIGRAM/SQ. METER (EVERY 4 WEEKS) SCHEDULED TO RECEIVE CYCLICAL TREATMENT?..
     Route: 042
  3. VINCRISTINE [Suspect]
     Active Substance: VINCRISTINE
     Indication: Medulloblastoma
     Dosage: 1.5 MILLIGRAM/SQ. METER (EVERY 4 WEEKS)SCHEDULED TO RECEIVE CYCLICAL TREATMENT ON.....
     Route: 042

REACTIONS (1)
  - Drug ineffective [Unknown]
